FAERS Safety Report 9471503 (Version 1)
Quarter: 2013Q3

REPORT INFORMATION
  Report Type: Spontaneous
  Country: US (occurrence: US)
  Receive Date: 20130822
  Receipt Date: 20130822
  Transmission Date: 20140515
  Serious: No
  Sender: FDA-Public Use
  Company Number: US-PFIZER INC-2013238963

PATIENT
  Age: 85 Year
  Sex: Female
  Weight: 52.15 kg

DRUGS (3)
  1. ZITHROMAX [Suspect]
     Indication: LUNG INFECTION
     Dosage: 500 MG, A DAY FOR THE FIRST DAY
     Dates: start: 20130804, end: 20130805
  2. ZITHROMAX [Suspect]
     Dosage: 250 MG, 1X/DAY
     Dates: start: 20130806, end: 20130810
  3. AVAPRO [Concomitant]
     Indication: HYPERTENSION
     Dosage: UNK

REACTIONS (1)
  - Bowel movement irregularity [Unknown]
